FAERS Safety Report 9462277 (Version 2)
Quarter: 2013Q4

REPORT INFORMATION
  Report Type: Spontaneous
  Country: US (occurrence: US)
  Receive Date: 20130816
  Receipt Date: 20131118
  Transmission Date: 20140711
  Serious: Yes (Other)
  Sender: FDA-Public Use
  Company Number: US-ELI_LILLY_AND_COMPANY-US201308003117

PATIENT
  Sex: 0

DRUGS (1)
  1. AMYVID [Suspect]

REACTIONS (1)
  - Suspected transmission of an infectious agent via product [Unknown]
